FAERS Safety Report 9564728 (Version 1)
Quarter: 2013Q3

REPORT INFORMATION
  Report Type: Spontaneous
  Country: US (occurrence: US)
  Receive Date: 20130930
  Receipt Date: 20130930
  Transmission Date: 20140515
  Serious: No
  Sender: FDA-Public Use
  Company Number: US-PFIZER INC-2013278657

PATIENT
  Sex: 0

DRUGS (38)
  1. CELEBREX [Suspect]
     Dosage: UNK
  2. NEURONTIN [Suspect]
     Dosage: UNK
  3. XANAX [Suspect]
     Dosage: UNK
  4. ZOLOFT [Suspect]
     Dosage: UNK
  5. LOMOTIL [Suspect]
     Dosage: UNK
  6. ADVIL [Suspect]
     Dosage: UNK
  7. PROMETHAZINE HCL [Suspect]
     Dosage: UNK
  8. GUAIFENESIN [Suspect]
     Dosage: UNK
  9. CLINDAMYCIN HCL [Suspect]
     Dosage: UNK
  10. CIPROFLOXACIN [Suspect]
     Dosage: UNK
  11. PRILOSEC [Suspect]
     Dosage: UNK
  12. TETANUS VACCINE [Suspect]
     Indication: IMMUNISATION
     Dosage: UNK
  13. BUSPAR [Suspect]
     Dosage: UNK
  14. REGLAN [Suspect]
     Dosage: UNK
  15. CLINORIL [Suspect]
     Dosage: UNK
  16. DICYCLOMINE [Suspect]
     Dosage: UNK
  17. HYDROCODONE [Suspect]
     Dosage: UNK
  18. MOTRIN [Suspect]
     Dosage: UNK
  19. CIPRO [Suspect]
     Dosage: UNK
  20. CELEXA [Suspect]
     Dosage: UNK
  21. NOVOCAIN [Suspect]
     Dosage: UNK
  22. LEVAQUIN [Suspect]
     Dosage: UNK
  23. NEXIUM [Suspect]
     Dosage: UNK
  24. PHENAZOPYRIDINE [Suspect]
     Dosage: UNK
  25. PAMINE [Suspect]
     Dosage: UNK
  26. ASACOL [Suspect]
     Dosage: UNK
  27. DIPENTUM [Suspect]
     Dosage: UNK
  28. XIFAXIN [Suspect]
     Dosage: UNK
  29. STRATTERA [Suspect]
     Dosage: UNK
  30. CARAFATE [Suspect]
     Dosage: UNK
  31. METRONIDAZOLE [Suspect]
     Dosage: UNK
  32. SMZ-TMP [Suspect]
     Dosage: UNK
  33. DARVON [Suspect]
     Dosage: UNK
  34. ZYBAN [Suspect]
     Dosage: UNK
  35. BENTYL [Suspect]
     Dosage: UNK
  36. ULTRAM [Suspect]
     Dosage: UNK
  37. SINGULAIR [Suspect]
     Dosage: UNK
  38. ZEGERID [Suspect]
     Dosage: UNK

REACTIONS (1)
  - Drug hypersensitivity [Unknown]
